FAERS Safety Report 7267590-5 (Version None)
Quarter: 2011Q1

REPORT INFORMATION
  Report Type: 
  Country: None (occurrence: None)
  Receive Date: 20110121
  Receipt Date: 20110107
  Transmission Date: 20110831
  Serious: Yes (Hospitalization)
  Sender: FDA-Public Use
  Company Number: AUR-APL-2011-00124

PATIENT
  Sex: Female
  Weight: 63 kg

DRUGS (1)
  1. MIRTAZAPINE [Suspect]
     Indication: DEPRESSION
     Dosage: 15 MG - ORAL
     Route: 048
     Dates: start: 20101028

REACTIONS (3)
  - BALLISMUS [None]
  - AKATHISIA [None]
  - HYPERKINESIA [None]
